FAERS Safety Report 5268779-7 (Version None)
Quarter: 2007Q1

REPORT INFORMATION
  Report Type: 
  Country: None (occurrence: None)
  Receive Date: 20070313
  Receipt Date: 20070305
  Transmission Date: 20070707
  Serious: Yes (Death, Disabling)
  Sender: FDA-Public Use
  Company Number: 2007-00581

PATIENT
  Age: 65 Year
  Sex: Female

DRUGS (20)
  1. VELCADE [Suspect]
     Indication: MULTIPLE MYELOMA
     Dosage: 1.30 MG/M2
     Dates: start: 20061211, end: 20070113
  2. DEXAMETHASONE [Concomitant]
  3. MEROPEN (MEROPENEM) [Concomitant]
  4. BAKTAR (SULFAMETHOXAZOLE, TRIMETHOPRIM) [Concomitant]
  5. VORICONAZOLE (VORICONAZOLE) [Concomitant]
  6. MORPHINE [Concomitant]
  7. FAMOTIDINE [Concomitant]
  8. BENZYLPENICILLIN (BENZYLPENICILLIN) [Concomitant]
  9. RED BLOOD CELLS [Concomitant]
  10. NEUPOGEN [Concomitant]
  11. PIPERACILLIN SODIUM [Concomitant]
  12. DIFLUCAN [Concomitant]
  13. ADONA (CARBAZOCHROME SODIUM SULFONATE) [Concomitant]
  14. TRANSAMIN (TRANEXAMIC ACID) [Concomitant]
  15. ATARAX [Concomitant]
  16. HALOPERIDOL [Concomitant]
  17. TIENAM (IMIPENEM, CILASTATIN) [Concomitant]
  18. FUNGUARD [Concomitant]
  19. ACYCLOVIR [Concomitant]
  20. PANTOSIN (PANTETHINE) [Concomitant]

REACTIONS (3)
  - CONDITION AGGRAVATED [None]
  - HAEMATURIA [None]
  - NEOPLASM MALIGNANT [None]
